FAERS Safety Report 23107635 (Version 1)
Quarter: 2023Q4

REPORT INFORMATION
  Report Type: Spontaneous
  Country: FR (occurrence: FR)
  Receive Date: 20231026
  Receipt Date: 20231026
  Transmission Date: 20240110
  Serious: Yes (Hospitalization, Other)
  Sender: FDA-Public Use
  Company Number: FR-AFSSAPS-AN2023001211

PATIENT
  Age: 25 Year
  Sex: Male
  Weight: 66 kg

DRUGS (4)
  1. BISOPROLOL [Suspect]
     Active Substance: BISOPROLOL\BISOPROLOL FUMARATE
     Indication: Myocarditis
     Dosage: 2.5 MILLIGRAM, ONCE A DAY
     Route: 048
     Dates: start: 202204
  2. RAMIPRIL [Suspect]
     Active Substance: RAMIPRIL
     Indication: Myocarditis
     Dosage: 1.25 MILLIGRAM, ONCE A DAY
     Route: 048
     Dates: start: 202204
  3. PEGASYS [Suspect]
     Active Substance: PEGINTERFERON ALFA-2A
     Indication: Polycythaemia vera
     Dosage: 1 DOSAGE FORM (ONCE IN 7 DAYS)
     Route: 058
     Dates: start: 2018, end: 202211
  4. Previscan [Concomitant]
     Indication: Product used for unknown indication
     Dosage: 0.75 DOSAGE FORM, ONCE A DAY
     Route: 048

REACTIONS (2)
  - Organising pneumonia [Recovered/Resolved with Sequelae]
  - Pleural effusion [Recovered/Resolved with Sequelae]

NARRATIVE: CASE EVENT DATE: 20220801
